FAERS Safety Report 4782751-2 (Version None)
Quarter: 2005Q3

REPORT INFORMATION
  Report Type: 
  Country: None (occurrence: None)
  Receive Date: 20050929
  Receipt Date: 20050126
  Transmission Date: 20060218
  Serious: No
  Sender: FDA-Public Use
  Company Number: US-GLAXOSMITHKLINE-A0542687A

PATIENT
  Sex: Female

DRUGS (1)
  1. EPIVIR [Suspect]
     Indication: HEPATITIS B
     Route: 048

REACTIONS (3)
  - ABDOMINAL DISTENSION [None]
  - FUNGAL INFECTION [None]
  - IRRITABILITY [None]
